FAERS Safety Report 5089304-X (Version None)
Quarter: 2006Q3

REPORT INFORMATION
  Report Type: 
  Country: None (occurrence: None)
  Receive Date: 20060822
  Receipt Date: 20060807
  Transmission Date: 20061208
  Serious: Yes (Death)
  Sender: FDA-Public Use
  Company Number: FI200605001244

PATIENT
  Age: 51 Year
  Sex: Male

DRUGS (6)
  1. ZYPREXA [Suspect]
     Indication: BIPOLAR DISORDER
     Dosage: 15 MG, ORAL
     Route: 048
     Dates: start: 20030710
  2. CARBAMAZEPINE [Concomitant]
  3. BENZODIAZEPINE DERIVATIVES [Concomitant]
  4. MOCLOBEMIDE (MOCLOBEMIDE) [Concomitant]
  5. VALPROATE SODIUM [Concomitant]
  6. TEMAZEPAM [Concomitant]

REACTIONS (3)
  - ALCOHOL POISONING [None]
  - COMPLETED SUICIDE [None]
  - HYPOMANIA [None]
